FAERS Safety Report 7957373-2 (Version None)
Quarter: 2011Q4

REPORT INFORMATION
  Report Type: 
  Country: None (occurrence: None)
  Receive Date: 20111205
  Receipt Date: 20111128
  Transmission Date: 20120403
  Serious: Yes (Hospitalization, Other)
  Sender: FDA-Public Use
  Company Number: PHHY2011GB103860

PATIENT
  Age: 53 Year
  Sex: Male

DRUGS (10)
  1. ATORVASTATIN [Suspect]
     Dosage: 40 MG, QD
     Route: 048
     Dates: end: 20110915
  2. AMLODIPINE [Concomitant]
     Dosage: UNK
  3. ASPIRIN [Concomitant]
     Dosage: UNK
  4. METFORMIN HCL [Suspect]
     Indication: DIABETES MELLITUS
     Dosage: 1 G, BID
     Route: 048
     Dates: end: 20110915
  5. ATENOLOL [Concomitant]
     Dosage: UNK
  6. NAPROXEN [Concomitant]
     Dosage: UNK
     Dates: start: 20110826
  7. OMEPRAZOLE [Concomitant]
     Dosage: UNK
     Dates: start: 20110826
  8. RAMIPRIL [Concomitant]
     Dosage: UNK
  9. NOVOLOG MIX 70/30 [Concomitant]
     Dosage: UNK
  10. QUININE [Concomitant]
     Dosage: UNK
     Dates: start: 20110826

REACTIONS (5)
  - BACK PAIN [None]
  - RENAL FAILURE ACUTE [None]
  - MUSCLE SPASMS [None]
  - RHABDOMYOLYSIS [None]
  - LETHARGY [None]
